FAERS Safety Report 17028628 (Version 1)
Quarter: 2019Q4

REPORT INFORMATION
  Report Type: Spontaneous
  Country: CN (occurrence: CN)
  Receive Date: 20191113
  Receipt Date: 20191113
  Transmission Date: 20200122
  Serious: Yes (Life-Threatening, Hospitalization, Disabling, Other)
  Sender: FDA-Public Use
  Company Number: CN-BAXTER-2019BAX022512

PATIENT
  Age: 72 Year
  Sex: Male
  Weight: 54 kg

DRUGS (8)
  1. SODIUM CHLORIDE. [Suspect]
     Active Substance: SODIUM CHLORIDE
     Indication: CHEMOTHERAPY
     Dosage: ETOPOSIDE 180 MG+0.9% NS 800 ML D1-3
     Route: 041
     Dates: start: 20190909, end: 20190912
  2. CARBOPLATIN. [Suspect]
     Active Substance: CARBOPLATIN
     Indication: SMALL CELL LUNG CANCER
  3. 5% GLUCOSE  INJECTION [Suspect]
     Active Substance: DEXTROSE
     Indication: SMALL CELL LUNG CANCER
  4. ETOPOSIDE (VP-16) [Suspect]
     Active Substance: ETOPOSIDE
     Indication: SMALL CELL LUNG CANCER
  5. CARBOPLATIN. [Suspect]
     Active Substance: CARBOPLATIN
     Indication: CHEMOTHERAPY
     Dosage: CARBOPLATIN 400 MG+5% GS 500 ML D1
     Route: 041
     Dates: start: 20190909, end: 20190909
  6. 5% GLUCOSE  INJECTION [Suspect]
     Active Substance: DEXTROSE
     Indication: CHEMOTHERAPY
     Dosage: CARBOPLATIN 400MG+5% GS 500 ML D1
     Route: 041
     Dates: start: 20190909, end: 20190909
  7. SODIUM CHLORIDE. [Suspect]
     Active Substance: SODIUM CHLORIDE
     Indication: SMALL CELL LUNG CANCER
  8. ETOPOSIDE (VP-16) [Suspect]
     Active Substance: ETOPOSIDE
     Indication: CHEMOTHERAPY
     Dosage: ETOPOSIDE 180 MG+0.9% NS 800 ML D1-3
     Route: 041
     Dates: start: 20190909, end: 20190912

REACTIONS (1)
  - Bone marrow failure [Recovering/Resolving]

NARRATIVE: CASE EVENT DATE: 20190923
